FAERS Safety Report 15921539 (Version 1)
Quarter: 2019Q1

REPORT INFORMATION
  Report Type: Spontaneous
  Country: US (occurrence: US)
  Receive Date: 20190116
  Receipt Date: 20190116
  Transmission Date: 20190417
  Serious: No
  Sender: FDA-Public Use
  Company Number: None

PATIENT
  Age: 63 Year
  Sex: Female
  Weight: 53.98 kg

DRUGS (1)
  1. MAVYRET [Suspect]
     Active Substance: GLECAPREVIR\PIBRENTASVIR
     Indication: CHRONIC HEPATITIS C
     Dosage: TAKE 3 TABLETS BY MOUTH ONCE DAILY WITH FOOD AS DIRECTED?
     Route: 048
     Dates: start: 201812

REACTIONS (2)
  - Therapy cessation [None]
  - Rash [None]
